FAERS Safety Report 7388400-1 (Version None)
Quarter: 2011Q2

REPORT INFORMATION
  Report Type: 
  Country: None (occurrence: None)
  Receive Date: 20110401
  Receipt Date: 20110323
  Transmission Date: 20111010
  Serious: Yes (Other)
  Sender: FDA-Public Use
  Company Number: TR-US-EMD SERONO, INC.-7049820

PATIENT
  Sex: Female
  Weight: 90 kg

DRUGS (2)
  1. REBIF [Suspect]
     Indication: MULTIPLE SCLEROSIS
     Route: 058
     Dates: start: 20100923, end: 20110123
  2. SERTRALINE HYDROCHLORIDE [Concomitant]
     Indication: DEPRESSION

REACTIONS (6)
  - MUSCLE SPASTICITY [None]
  - PYREXIA [None]
  - ARTHRALGIA [None]
  - C-REACTIVE PROTEIN INCREASED [None]
  - TREMOR [None]
  - MYALGIA [None]
